FAERS Safety Report 18647324 (Version 1)
Quarter: 2020Q4

REPORT INFORMATION
  Report Type: Spontaneous
  Country: GB (occurrence: GB)
  Receive Date: 20201222
  Receipt Date: 20201222
  Transmission Date: 20210114
  Serious: Yes (Other)
  Sender: FDA-Public Use
  Company Number: GB-ACCORD-211653

PATIENT
  Age: 53 Year
  Sex: Female
  Weight: 73.02 kg

DRUGS (2)
  1. AMITRIPTYLINE [Suspect]
     Active Substance: AMITRIPTYLINE
     Indication: PRODUCT USED FOR UNKNOWN INDICATION
     Dosage: REDUCING EVERY 3 DAYS TO ZERO
  2. PIZOTIFEN [Suspect]
     Active Substance: PIZOTYLINE
     Indication: HEMIPLEGIC MIGRAINE
     Route: 048
     Dates: start: 20201120, end: 20201129

REACTIONS (10)
  - Seizure [Recovered/Resolved]
  - Condition aggravated [Unknown]
  - Somnolence [Unknown]
  - Decreased appetite [Unknown]
  - Suicidal ideation [Recovered/Resolved]
  - Aggression [Recovered/Resolved]
  - Insomnia [Recovered/Resolved]
  - Feeling abnormal [Recovered/Resolved]
  - Hallucination [Recovered/Resolved]
  - Malaise [Unknown]

NARRATIVE: CASE EVENT DATE: 20201121
